FAERS Safety Report 12204556 (Version 2)
Quarter: 2016Q2

REPORT INFORMATION
  Report Type: Spontaneous
  Country: US (occurrence: US)
  Receive Date: 20160323
  Receipt Date: 20160505
  Transmission Date: 20160815
  Serious: No
  Sender: FDA-Public Use
  Company Number: US-PFIZER INC-2016165171

PATIENT
  Age: 14 Year
  Sex: Female

DRUGS (1)
  1. GENOTROPIN [Suspect]
     Active Substance: SOMATROPIN
     Dosage: 2 MG, 1X/DAY (AT NIGHT)
     Route: 058
     Dates: start: 20160107

REACTIONS (4)
  - Growing pains [Unknown]
  - Arthralgia [Unknown]
  - Pain in extremity [Unknown]
  - Drug effect incomplete [Unknown]
